FAERS Safety Report 22097175 (Version 2)
Quarter: 2023Q1

REPORT INFORMATION
  Report Type: Report from Study
  Country: US (occurrence: US)
  Receive Date: 20230315
  Receipt Date: 20230320
  Transmission Date: 20230418
  Serious: No
  Sender: FDA-Public Use
  Company Number: US-002147023-NVSC2023US054359

PATIENT
  Sex: Female
  Weight: 74.84 kg

DRUGS (5)
  1. COSENTYX [Suspect]
     Active Substance: SECUKINUMAB
     Indication: Guttate psoriasis
     Dosage: UNK
     Route: 058
  2. FLUOCINONIDE [Suspect]
     Active Substance: FLUOCINONIDE
     Indication: Guttate psoriasis
     Dosage: 0.05 %, BID
     Route: 061
  3. LORAZEPAM [Suspect]
     Active Substance: LORAZEPAM
     Indication: Product used for unknown indication
     Dosage: UNK (AS NEEDED)
     Route: 065
  4. TRIAMCINOLONE ACETONIDE [Suspect]
     Active Substance: TRIAMCINOLONE ACETONIDE
     Indication: Guttate psoriasis
     Dosage: 0.1 %
     Route: 061
  5. PREDNISONE [Suspect]
     Active Substance: PREDNISONE
     Indication: Guttate psoriasis
     Dosage: UNK (2 ROUNDS)
     Route: 065

REACTIONS (3)
  - Guttate psoriasis [Unknown]
  - Arthralgia [Unknown]
  - Product use in unapproved indication [Unknown]
